FAERS Safety Report 21840028 (Version 1)
Quarter: 2023Q1

REPORT INFORMATION
  Report Type: Report from Study
  Country: US (occurrence: US)
  Receive Date: 20230110
  Receipt Date: 20230110
  Transmission Date: 20230418
  Serious: No
  Sender: FDA-Public Use
  Company Number: US-ABBVIE-4227437

PATIENT
  Sex: Male

DRUGS (1)
  1. SKYRIZI [Suspect]
     Active Substance: RISANKIZUMAB-RZAA
     Indication: Psoriasis
     Dosage: FORM STRENGTH: 150 MG/ML?FREQUENCY TEXT: ONCE ON WEEK 4?150 MG/ML SUBCUTANEOUSLY ONCE (WEEK 0, WE...
     Route: 058
     Dates: start: 20221111

REACTIONS (1)
  - Inappropriate schedule of product administration [Unknown]
